FAERS Safety Report 6480720-8 (Version None)
Quarter: 2009Q4

REPORT INFORMATION
  Report Type: 
  Country: None (occurrence: None)
  Receive Date: 20091208
  Receipt Date: 20091203
  Transmission Date: 20100525
  Serious: Yes (Other)
  Sender: FDA-Public Use
  Company Number: IT-BRISTOL-MYERS SQUIBB COMPANY-14827935

PATIENT
  Age: 65 Year
  Sex: Male

DRUGS (5)
  1. COUMADIN [Suspect]
     Indication: ATRIAL FIBRILLATION
     Route: 048
     Dates: start: 20080101, end: 20091010
  2. LANOXIN [Concomitant]
  3. CARDICOR [Concomitant]
  4. VASERETIC [Concomitant]
     Dosage: 20 MG + 12,5MGTABS
  5. LACIREX [Concomitant]

REACTIONS (2)
  - BLOOD PRESSURE INCREASED [None]
  - GINGIVAL BLEEDING [None]
